FAERS Safety Report 6440698-X (Version None)
Quarter: 2009Q4

REPORT INFORMATION
  Report Type: 
  Country: None (occurrence: None)
  Receive Date: 20091116
  Receipt Date: 20091106
  Transmission Date: 20100525
  Serious: Yes (Hospitalization)
  Sender: FDA-Public Use
  Company Number: US-BIOGENIDEC-2009BI022860

PATIENT
  Age: 56 Year
  Sex: Female

DRUGS (5)
  1. AVONEX [Suspect]
     Indication: MULTIPLE SCLEROSIS
     Route: 030
     Dates: start: 19980801, end: 20051223
  2. AVONEX [Suspect]
     Route: 030
     Dates: start: 20060326, end: 20080101
  3. AVONEX [Suspect]
     Route: 030
     Dates: start: 20080429, end: 20080926
  4. AVONEX [Suspect]
     Route: 030
     Dates: start: 20090201, end: 20090607
  5. VANCOMYCIN [Concomitant]

REACTIONS (4)
  - ABASIA [None]
  - ARTHRALGIA [None]
  - OSTEOMYELITIS [None]
  - PYREXIA [None]
